FAERS Safety Report 7511923-9 (Version None)
Quarter: 2011Q2

REPORT INFORMATION
  Report Type: 
  Country: None (occurrence: None)
  Receive Date: 20110520
  Receipt Date: 20110509
  Transmission Date: 20111010
  Serious: Yes (Hospitalization)
  Sender: FDA-Public Use
  Company Number: DSA_46690_2011

PATIENT
  Age: 81 Year
  Sex: Female

DRUGS (1)
  1. DILTIAZEM HYDROCHLORIDE [Suspect]
     Indication: HYPERTENSION
     Dosage: (DF)
     Dates: start: 20101228, end: 20110115

REACTIONS (3)
  - DRUG ERUPTION [None]
  - ECZEMA [None]
  - EPIDERMAL NECROSIS [None]
